FAERS Safety Report 13628276 (Version 4)
Quarter: 2017Q4

REPORT INFORMATION
  Report Type: Spontaneous
  Country: US (occurrence: US)
  Receive Date: 20170608
  Receipt Date: 20171020
  Transmission Date: 20180320
  Serious: Yes (Death)
  Sender: FDA-Public Use
  Company Number: US-PFIZER INC-2017246373

PATIENT

DRUGS (5)
  1. BACTERIOSTATIC SODIUM CHLORIDE [Suspect]
     Active Substance: SODIUM CHLORIDE
     Indication: CATHETER MANAGEMENT
     Dosage: UNK
     Route: 042
  2. HEPARIN [Concomitant]
     Active Substance: HEPARIN SODIUM
     Indication: CATHETER MANAGEMENT
  3. WATER BACTERIOSTATIC [Suspect]
     Active Substance: WATER
     Dosage: UNK
  4. BENZYL ALCOHOL [Suspect]
     Active Substance: BENZYL ALCOHOL
     Dosage: UNK
     Route: 042
  5. BENZYL ALCOHOL [Suspect]
     Active Substance: BENZYL ALCOHOL
     Dosage: UNK

REACTIONS (3)
  - Toxicity to various agents [Fatal]
  - Drug administered to patient of inappropriate age [Fatal]
  - Gasping syndrome [Fatal]
